FAERS Safety Report 4704450-5 (Version None)
Quarter: 2005Q2

REPORT INFORMATION
  Report Type: 
  Country: None (occurrence: None)
  Receive Date: 20050628
  Receipt Date: 20050610
  Transmission Date: 20051028
  Serious: Yes (Hospitalization)
  Sender: FDA-Public Use
  Company Number: FR_050606628

PATIENT
  Age: 76 Year
  Sex: Female

DRUGS (3)
  1. EVISTA [Suspect]
     Indication: OSTEOPOROSIS
     Dosage: 60 MG DAY
     Route: 048
     Dates: start: 20040601
  2. ALDACTONE [Concomitant]
  3. TANAKAN                               (GINKGO BILOBA EXTRACT) [Concomitant]

REACTIONS (1)
  - BREAST CANCER FEMALE [None]
